FAERS Safety Report 6660763-1 (Version None)
Quarter: 2010Q1

REPORT INFORMATION
  Report Type: 
  Country: None (occurrence: None)
  Receive Date: 20100331
  Receipt Date: 20100329
  Transmission Date: 20100710
  Serious: Yes (Hospitalization, Disabling)
  Sender: FDA-Public Use
  Company Number: US-ROCHE-409435

PATIENT
  Sex: Female
  Weight: 77.1 kg

DRUGS (2)
  1. ACCUTANE [Suspect]
     Route: 048
     Dates: start: 19861105, end: 19870331
  2. MINOCIN [Concomitant]
     Route: 048
     Dates: start: 19861105

REACTIONS (9)
  - AMENORRHOEA [None]
  - COLITIS [None]
  - GASTROINTESTINAL DISORDER [None]
  - INFLAMMATORY BOWEL DISEASE [None]
  - INTESTINAL HAEMORRHAGE [None]
  - MOOD SWINGS [None]
  - MULTI-ORGAN DISORDER [None]
  - PROCTITIS ULCERATIVE [None]
  - RECTAL HAEMORRHAGE [None]
